FAERS Safety Report 17336854 (Version 1)
Quarter: 2020Q1

REPORT INFORMATION
  Report Type: Spontaneous
  Country: FR (occurrence: FR)
  Receive Date: 20200129
  Receipt Date: 20200129
  Transmission Date: 20200409
  Serious: Yes (Disabling)
  Sender: FDA-Public Use
  Company Number: NVSC2020FR017510

PATIENT
  Age: 56 Year
  Sex: Female

DRUGS (1)
  1. SIMBRINZA [Suspect]
     Active Substance: BRIMONIDINE TARTRATE\BRINZOLAMIDE
     Indication: INTRAOCULAR PRESSURE INCREASED
     Dosage: UNK
     Route: 047
     Dates: start: 201901, end: 20190917

REACTIONS (7)
  - Visual impairment [Unknown]
  - Visual brightness [Unknown]
  - Eye pain [Unknown]
  - Eye irritation [Unknown]
  - Eczema eyelids [Unknown]
  - Conjunctivitis allergic [Unknown]
  - Dry eye [Not Recovered/Not Resolved]

NARRATIVE: CASE EVENT DATE: 20190616
